FAERS Safety Report 10275838 (Version 1)
Quarter: 2014Q3

REPORT INFORMATION
  Report Type: Spontaneous
  Country: US (occurrence: None)
  Receive Date: 20140701
  Receipt Date: 20140701
  Transmission Date: 20150326
  Serious: Yes (Other)
  Sender: FDA-Public Use
  Company Number: CM14-0042

PATIENT

DRUGS (1)
  1. PHYTONADIONE. [Suspect]
     Active Substance: PHYTONADIONE
     Indication: INJURY ASSOCIATED WITH DEVICE
     Dosage: NEEDLE STICK

REACTIONS (1)
  - Injury associated with device [None]
